FAERS Safety Report 8594648-0 (Version None)
Quarter: 2012Q3

REPORT INFORMATION
  Report Type: 
  Country: None (occurrence: None)
  Receive Date: 20120815
  Receipt Date: 20120813
  Transmission Date: 20120928
  Serious: No
  Sender: FDA-Public Use
  Company Number: US-PFIZER INC-2012197596

PATIENT
  Sex: Female

DRUGS (2)
  1. LYRICA [Suspect]
     Indication: POLYNEUROPATHY CHRONIC
     Dosage: 225 MG, 3X/DAY
  2. LYRICA [Suspect]
     Indication: DEMYELINATING POLYNEUROPATHY
     Dosage: 250 MG, 3X/DAY

REACTIONS (2)
  - PARAESTHESIA [None]
  - HYPOAESTHESIA [None]
